FAERS Safety Report 5827339-7 (Version None)
Quarter: 2008Q3

REPORT INFORMATION
  Report Type: 
  Country: None (occurrence: None)
  Receive Date: 20080730
  Receipt Date: 20080724
  Transmission Date: 20090109
  Serious: Yes (Life-Threatening, Hospitalization)
  Sender: FDA-Public Use
  Company Number: FR-AVENTIS-200713431FR

PATIENT
  Age: 50 Year
  Sex: Female
  Weight: 66 kg

DRUGS (15)
  1. ARAVA [Suspect]
     Indication: RHEUMATOID ARTHRITIS
     Route: 048
     Dates: start: 20061123, end: 20071011
  2. REMICADE [Suspect]
     Indication: RHEUMATOID ARTHRITIS
     Route: 042
     Dates: start: 20061123, end: 20061123
  3. REMICADE [Suspect]
     Route: 042
     Dates: start: 20061211, end: 20061211
  4. REMICADE [Suspect]
     Route: 042
     Dates: start: 20070104, end: 20070104
  5. REMICADE [Suspect]
     Route: 048
     Dates: start: 20070228, end: 20070228
  6. REMICADE [Suspect]
     Route: 042
     Dates: start: 20070426, end: 20070426
  7. REMICADE [Suspect]
     Route: 048
     Dates: start: 20070621, end: 20070621
  8. REMICADE [Suspect]
     Route: 042
     Dates: start: 20070816, end: 20070816
  9. CORTANCYL [Concomitant]
     Route: 048
  10. CORTANCYL [Concomitant]
     Route: 048
     Dates: end: 20070101
  11. STAGID [Concomitant]
     Indication: DIABETES MELLITUS
     Route: 048
     Dates: start: 20050101, end: 20071011
  12. NOVONORM [Concomitant]
     Indication: DIABETES MELLITUS
     Route: 048
  13. ACETAMINOPHEN AND CODEINE PHOSPHATE [Concomitant]
     Indication: RHEUMATOID ARTHRITIS
     Route: 048
  14. MICROVAL [Concomitant]
     Indication: CONTRACEPTION
     Route: 048
  15. TAHOR [Concomitant]
     Route: 048
     Dates: start: 20070412, end: 20070426

REACTIONS (6)
  - ASTERIXIS [None]
  - BLOOD BILIRUBIN INCREASED [None]
  - ENCEPHALOPATHY [None]
  - HEPATITIS FULMINANT [None]
  - LUPUS HEPATITIS [None]
  - TRANSAMINASES INCREASED [None]
